FAERS Safety Report 24940697 (Version 1)
Quarter: 2025Q1

REPORT INFORMATION
  Report Type: Report from Study
  Country: US (occurrence: US)
  Receive Date: 20250207
  Receipt Date: 20250207
  Transmission Date: 20250408
  Serious: Yes (Other)
  Sender: ALEXION PHARMACEUTICALS
  Company Number: US-AstraZeneca-CH-00798239A

PATIENT

DRUGS (1)
  1. OLAPARIB [Suspect]
     Active Substance: OLAPARIB
     Indication: Neoplasm malignant
     Dosage: 100 MILLIGRAM, QD

REACTIONS (3)
  - Product dose omission issue [Unknown]
  - Loss of consciousness [Unknown]
  - Osteogenesis imperfecta [Unknown]
